FAERS Safety Report 26095070 (Version 1)
Quarter: 2025Q4

REPORT INFORMATION
  Report Type: Spontaneous
  Country: KR (occurrence: KR)
  Receive Date: 20251127
  Receipt Date: 20251127
  Transmission Date: 20260118
  Serious: Yes (Hospitalization, Other)
  Sender: CELLTRION
  Company Number: KR-CELLTRION INC.-2025KR042700

PATIENT

DRUGS (4)
  1. INFLIXIMAB [Suspect]
     Active Substance: INFLIXIMAB
     Indication: Rheumatoid arthritis
     Dosage: UNK
     Route: 058
     Dates: start: 20251013, end: 20251028
  2. INFLIXIMAB [Suspect]
     Active Substance: INFLIXIMAB
     Dosage: PATIENT WAS IN A STABLE CONDITION WITH NO WOUND PROBLEMS AFTER SURGERY, SO RHEUMATOID  ARTHRITIS MED
     Route: 058
     Dates: start: 20251031
  3. METHOTREXATE SODIUM [Suspect]
     Active Substance: METHOTREXATE SODIUM
     Indication: Rheumatoid arthritis
     Dosage: TEMPORARILY DISCONTINUED ON 2025.10.03
     Dates: end: 20251003
  4. METHOTREXATE SODIUM [Suspect]
     Active Substance: METHOTREXATE SODIUM
     Dosage: PATIENT WAS IN A STABLE CONDITION WITH NO WOUND PROBLEMS AFTER SURGERY, SO RHEUMATOID  ARTHRITIS MED
     Dates: start: 20251031

REACTIONS (1)
  - Osteoarthritis [Recovering/Resolving]

NARRATIVE: CASE EVENT DATE: 20251013
